FAERS Safety Report 14935435 (Version 1)
Quarter: 2018Q2

REPORT INFORMATION
  Report Type: Spontaneous
  Country: CN (occurrence: CN)
  Receive Date: 20180524
  Receipt Date: 20180524
  Transmission Date: 20180711
  Serious: Yes (Death, Other)
  Sender: FDA-Public Use
  Company Number: CN-ARALEZ PHARMACEUTICALS R+D INC.-2018-ARA-001296

PATIENT
  Age: 74 Year
  Sex: Female

DRUGS (16)
  1. LIGUSTRAZINE [Concomitant]
     Active Substance: TETRAMETHYLPYRAZINE
     Indication: VASODILATATION
     Dosage: 10 ML, UNK
  2. HEPARIN [Concomitant]
     Active Substance: HEPARIN SODIUM
     Indication: ANTICOAGULANT THERAPY
     Dosage: 2500 U, UNK
     Route: 058
  3. AMBROXOL [Concomitant]
     Active Substance: AMBROXOL
     Indication: COUGH
     Dosage: 45 MG, BID
  4. METOPROLOL SUCCINATE. [Suspect]
     Active Substance: METOPROLOL SUCCINATE
     Dosage: 95 MG, QD
     Route: 048
     Dates: start: 20180329
  5. DOXOFYLLINE [Concomitant]
     Active Substance: DOXOFYLLINE
     Indication: ASTHMA
     Dosage: 0.2 G, BID
  6. AMIODARONE [Concomitant]
     Active Substance: AMIODARONE
     Indication: ARRHYTHMIA
     Dosage: 0.2 G, TID
  7. LIGUSTRAZINE [Concomitant]
     Active Substance: TETRAMETHYLPYRAZINE
     Indication: CARDIAC DISORDER
  8. CEFTAZIDIME. [Concomitant]
     Active Substance: CEFTAZIDIME
     Indication: INFECTION
     Dosage: 2 G, BID
  9. ASMETON [Concomitant]
     Active Substance: AMINOPHYLLINE\CHLORPHENIRAMINE MALEATE\METHOXYPHENAMINE HYDROCHLORIDE\NOSCAPINE
     Indication: COUGH
     Dosage: UNK
  10. METOPROLOL SUCCINATE. [Suspect]
     Active Substance: METOPROLOL SUCCINATE
     Indication: PRODUCT USED FOR UNKNOWN INDICATION
     Dosage: 47.5 MG, QD
     Route: 048
     Dates: start: 20180328
  11. AMIODARONE [Concomitant]
     Active Substance: AMIODARONE
     Dosage: 0.15 UNK, UNK
  12. SALVIA MILTIORRHIZA [Concomitant]
     Active Substance: HERBALS
     Indication: VASODILATATION
     Dosage: UNK
  13. METOPROLOL SUCCINATE. [Suspect]
     Active Substance: METOPROLOL SUCCINATE
     Dosage: 142.5 MG, QD
     Route: 048
     Dates: start: 20180330
  14. SALVIA MILTIORRHIZA [Concomitant]
     Active Substance: HERBALS
     Indication: CARDIOVASCULAR DISORDER
  15. GLUCOBAY [Concomitant]
     Active Substance: ACARBOSE
     Indication: BLOOD GLUCOSE ABNORMAL
     Dosage: 50 MG, TID
  16. METOPROLOL SUCCINATE. [Suspect]
     Active Substance: METOPROLOL SUCCINATE
     Dosage: 47.5 MG, QD
     Route: 048
     Dates: start: 20180401

REACTIONS (5)
  - Dyspnoea [Unknown]
  - Rales [Recovered/Resolved]
  - Sudden death [Fatal]
  - Lung disorder [Fatal]
  - Chest discomfort [Unknown]

NARRATIVE: CASE EVENT DATE: 20180330
